FAERS Safety Report 10488248 (Version 1)
Quarter: 2014Q4

REPORT INFORMATION
  Report Type: Spontaneous
  Country: NL (occurrence: NL)
  Receive Date: 20141002
  Receipt Date: 20141002
  Transmission Date: 20150528
  Serious: Yes (Death, Hospitalization)
  Sender: FDA-Public Use
  Company Number: PHHY2014NL124238

PATIENT
  Age: 77 Year
  Sex: Male

DRUGS (5)
  1. VANCOMYCIN [Suspect]
     Active Substance: VANCOMYCIN
  2. CLARITHROMYCIN. [Suspect]
     Active Substance: CLARITHROMYCIN
     Dosage: 250 MG, BID
     Route: 048
  3. AMOXICILLIN. [Suspect]
     Active Substance: AMOXICILLIN
     Dosage: 2 G, 6 TIMES DAILY
     Route: 042
  4. CEFTRIAXONE. [Suspect]
     Active Substance: CEFTRIAXONE
     Dosage: 2 G, BID
     Route: 042
  5. METRONIDAZOLE. [Suspect]
     Active Substance: METRONIDAZOLE
     Indication: INFECTION
     Dosage: 500 MG, TID
     Route: 042

REACTIONS (17)
  - Generalised erythema [Fatal]
  - Pyrexia [Fatal]
  - Drug reaction with eosinophilia and systemic symptoms [Fatal]
  - Acute kidney injury [Fatal]
  - Pruritus [Fatal]
  - Liver function test abnormal [Fatal]
  - Multi-organ failure [Fatal]
  - Dyspnoea [Fatal]
  - Haemodynamic instability [Unknown]
  - Acute hepatic failure [Fatal]
  - Urine output decreased [Fatal]
  - Diffuse alveolar damage [Fatal]
  - Concomitant disease progression [Fatal]
  - Disorientation [Unknown]
  - Jaundice [Fatal]
  - Skin exfoliation [Fatal]
  - Respiratory failure [Fatal]
